FAERS Safety Report 6674761-5 (Version None)
Quarter: 2010Q2

REPORT INFORMATION
  Report Type: 
  Country: None (occurrence: None)
  Receive Date: 20100409
  Receipt Date: 20100402
  Transmission Date: 20101027
  Serious: Yes (Other)
  Sender: FDA-Public Use
  Company Number: US-SANOFI-AVENTIS-A03200704712

PATIENT
  Age: 65 Year
  Sex: Female
  Weight: 54.5 kg

DRUGS (19)
  1. AMBIEN [Suspect]
     Indication: SLEEP DISORDER
     Dosage: DOSE TEXT: CUT TABLETS, TAKING 1/2 A TABLET (5 MG)UNIT DOSE: 10 MG
     Route: 048
     Dates: start: 20060101
  2. AMBIEN [Suspect]
     Dosage: UNIT DOSE: 10 MG
     Route: 048
     Dates: start: 20061122, end: 20061122
  3. PROZAC [Concomitant]
     Dosage: UNIT DOSE: 20 MG
     Route: 048
     Dates: start: 19980101
  4. ALEVE [Concomitant]
     Indication: ARTHRITIS
     Route: 048
  5. VIVELLE-DOT [Concomitant]
     Dosage: UNIT DOSE: .1 MG
     Route: 061
  6. BUTALBITAL ACETAMINOPHEN AND CAFFEINE [Concomitant]
     Route: 048
  7. DICLOFENAC SODIUM [Concomitant]
     Dosage: UNIT DOSE: 50 MG
     Route: 048
  8. WELLBUTRIN SR [Concomitant]
     Dosage: UNIT DOSE: 150 MG
     Route: 048
     Dates: start: 19980101
  9. TEMAZEPAM [Concomitant]
     Dosage: UNIT DOSE: 15 MG
     Route: 048
     Dates: end: 20080401
  10. SULFAMETHOXAZOLE AND TRIMETHOPRIM [Concomitant]
     Route: 048
  11. LEVOTHYROXINE SODIUM [Concomitant]
     Dosage: UNIT DOSE: .112 MG
     Route: 048
  12. CEPHALEXIN [Concomitant]
     Dosage: UNIT DOSE: 500 MG
     Route: 048
  13. ACETAMINOPHEN AND HYDROCODONE BITARTRATE [Concomitant]
     Dosage: DOSE TEXT: 5/500 MG
     Route: 048
  14. FLUTICASONE PROPIONATE [Concomitant]
     Route: 045
  15. METADATE CD [Concomitant]
     Dosage: UNIT DOSE: 40 MG
     Route: 048
  16. FOSAMAX [Concomitant]
     Dosage: UNIT DOSE: 70 MG
     Route: 048
  17. ACETAMINOPHEN AND OXYCODONE HCL [Concomitant]
     Dosage: DOSE TEXT: 5/325 MG
     Route: 048
  18. METHYLPHENIDATE [Concomitant]
     Route: 065
  19. PROPRANOLOL HYDROCHLORIDE [Concomitant]
     Route: 065

REACTIONS (8)
  - AMNESIA [None]
  - DISSOCIATIVE FUGUE [None]
  - IMPAIRED DRIVING ABILITY [None]
  - INTENTIONAL DRUG MISUSE [None]
  - OVERDOSE [None]
  - ROAD TRAFFIC ACCIDENT [None]
  - SLEEP-RELATED EATING DISORDER [None]
  - SOMNAMBULISM [None]
